FAERS Safety Report 9166583 (Version 1)
Quarter: 2013Q1

REPORT INFORMATION
  Report Type: Spontaneous
  Country: CA (occurrence: CA)
  Receive Date: 20130315
  Receipt Date: 20130315
  Transmission Date: 20140127
  Serious: Yes (Hospitalization)
  Sender: FDA-Public Use
  Company Number: CA-ELI_LILLY_AND_COMPANY-CA201303001556

PATIENT
  Age: 81 Year
  Sex: Female

DRUGS (11)
  1. FORTEO [Suspect]
     Indication: OSTEOPOROSIS
     Dosage: 20 UG, QD
     Route: 058
     Dates: start: 20111215
  2. HYDROXYCHLOROQUINE SULFATE [Concomitant]
     Dosage: UNK, UNKNOWN
     Route: 065
  3. NIACIN [Concomitant]
     Dosage: UNK, UNKNOWN
     Route: 065
  4. VITAMIN B12 [Concomitant]
     Dosage: UNK, UNKNOWN
     Route: 065
  5. DOCUSATE SODIUM [Concomitant]
     Dosage: UNK, UNKNOWN
     Route: 065
  6. BISOPROLOL [Concomitant]
     Dosage: UNK, UNKNOWN
     Route: 065
  7. NEXIUM [Concomitant]
     Dosage: UNK, UNKNOWN
     Route: 065
  8. CALCIUM [Concomitant]
     Dosage: UNK, UNKNOWN
     Route: 065
  9. VITAMIN D [Concomitant]
     Dosage: UNK, UNKNOWN
     Route: 065
  10. SYNTHROID [Concomitant]
     Dosage: UNK, UNKNOWN
     Route: 065
  11. PROCET                             /01554201/ [Concomitant]
     Dosage: UNK, UNKNOWN
     Route: 065

REACTIONS (4)
  - Hip fracture [Not Recovered/Not Resolved]
  - Fall [Not Recovered/Not Resolved]
  - Mobility decreased [Unknown]
  - Drug hypersensitivity [Unknown]
